FAERS Safety Report 5661424-8 (Version None)
Quarter: 2008Q1

REPORT INFORMATION
  Report Type: 
  Country: None (occurrence: None)
  Receive Date: 20080311
  Receipt Date: 20080228
  Transmission Date: 20080703
  Serious: Yes (Other)
  Sender: FDA-Public Use
  Company Number: HQWYE394222OCT03

PATIENT
  Sex: Female

DRUGS (3)
  1. PREMARIN [Suspect]
     Dosage: UNSPECIFIED DOSAGE, DAILY FOR A NUMBER OF YEARS
     Route: 048
  2. PREMPRO/PREMPHASE [Suspect]
  3. PREMARIN [Suspect]

REACTIONS (2)
  - BENIGN BREAST NEOPLASM [None]
  - BREAST CANCER [None]
